FAERS Safety Report 5993296-6 (Version None)
Quarter: 2008Q4

REPORT INFORMATION
  Report Type: 
  Country: None (occurrence: None)
  Receive Date: 20081210
  Receipt Date: 20081210
  Transmission Date: 20090506
  Serious: Yes (Life-Threatening, Hospitalization)
  Sender: FDA-Public Use
  Company Number: None

PATIENT
  Age: 39 Year
  Sex: Female
  Weight: 74.8435 kg

DRUGS (1)
  1. LEVAQUIN [Suspect]
     Indication: INCISION SITE INFECTION
     Dosage: 1 TABLET PER DAY PO
     Route: 048
     Dates: start: 20081208, end: 20081208

REACTIONS (8)
  - APHASIA [None]
  - CHEST DISCOMFORT [None]
  - DYSARTHRIA [None]
  - DYSPNOEA [None]
  - FEELING HOT [None]
  - HYPOAESTHESIA [None]
  - PALPITATIONS [None]
  - PARAESTHESIA [None]
